FAERS Safety Report 5173210-6 (Version None)
Quarter: 2006Q4

REPORT INFORMATION
  Report Type: 
  Country: None (occurrence: None)
  Receive Date: 20061205
  Receipt Date: 20061116
  Transmission Date: 20070319
  Serious: Yes (Other)
  Sender: FDA-Public Use
  Company Number: S06-GER-02854-01

PATIENT
  Age: 62 Year
  Sex: Female

DRUGS (6)
  1. ESCITALOPRAM OXALATE [Suspect]
     Indication: ANXIETY DISORDER
     Dosage: 5 MG QD PO
     Route: 048
     Dates: start: 20050524, end: 20060609
  2. ESCITALOPRAM OXALATE [Suspect]
     Indication: ANXIETY DISORDER
     Dosage: 5 MG QD PO
     Route: 048
     Dates: start: 20060703, end: 20060705
  3. CITALOPRAM HYDROBROMIDE [Suspect]
     Dosage: 10 MG QD PO
     Route: 048
  4. BLOPRESS (CANDESARTAN CILEXETIL) [Concomitant]
  5. NEBIVOLOL HCL [Concomitant]
  6. OVESTIN (ESTRIOL) [Concomitant]

REACTIONS (2)
  - LIPOMATOSIS [None]
  - OEDEMA PERIPHERAL [None]
